FAERS Safety Report 10230847 (Version 1)
Quarter: 2014Q2

REPORT INFORMATION
  Report Type: Spontaneous
  Country: US (occurrence: US)
  Receive Date: 20140611
  Receipt Date: 20140611
  Transmission Date: 20141212
  Serious: No
  Sender: FDA-Public Use
  Company Number: US-BAYER-2014-085459

PATIENT
  Age: 26 Year
  Sex: Male

DRUGS (1)
  1. ULTRAVIST [Suspect]
     Indication: COMPUTERISED TOMOGRAM ABDOMEN
     Dosage: 95 CC, ONCE

REACTIONS (4)
  - Urticaria [None]
  - Erythema [None]
  - Lip pruritus [None]
  - Paraesthesia [None]
